FAERS Safety Report 23436228 (Version 1)
Quarter: 2024Q1

REPORT INFORMATION
  Report Type: Spontaneous
  Country: DE (occurrence: DE)
  Receive Date: 20240124
  Receipt Date: 20240124
  Transmission Date: 20240409
  Serious: Yes (Death, Other)
  Sender: FDA-Public Use
  Company Number: DE-AMGEN-DEUSP2024010368

PATIENT

DRUGS (2)
  1. PROLIA [Suspect]
     Active Substance: DENOSUMAB
     Indication: Osteoporosis
     Dosage: UNK
     Route: 065
  2. XGEVA [Suspect]
     Active Substance: DENOSUMAB
     Indication: Breast cancer
     Dosage: UNK
     Route: 065

REACTIONS (10)
  - Death [Fatal]
  - Metastatic neoplasm [Unknown]
  - Spinal compression fracture [Unknown]
  - Nausea [Recovered/Resolved]
  - Pain [Unknown]
  - Dry skin [Unknown]
  - Diarrhoea [Unknown]
  - Dysphagia [Unknown]
  - Radiation skin injury [Unknown]
  - Fatigue [Unknown]
